FAERS Safety Report 8557227-7 (Version None)
Quarter: 2012Q3

REPORT INFORMATION
  Report Type: 
  Country: None (occurrence: None)
  Receive Date: 20120801
  Receipt Date: 20120731
  Transmission Date: 20120928
  Serious: Yes (Hospitalization, Other)
  Sender: FDA-Public Use
  Company Number: PHHO2011AU06658

PATIENT
  Sex: Female

DRUGS (5)
  1. SUNITINIB MALATE [Suspect]
     Indication: RENAL CELL CARCINOMA
     Dosage: 50 MG, UNK
     Dates: start: 20110322, end: 20110408
  2. AFINITOR [Suspect]
     Indication: RENAL CELL CARCINOMA
     Dosage: UNK
     Route: 048
     Dates: start: 20110503
  3. SUNITINIB MALATE [Suspect]
     Dosage: 37.5 MG, UNK
     Dates: start: 20110414
  4. KALMA [Concomitant]
     Dosage: 0.5 MG, PRN
     Route: 048
     Dates: start: 20070101
  5. ATACAND [Concomitant]
     Dosage: 4 MG, QD
     Route: 048
     Dates: start: 20080101

REACTIONS (5)
  - TOXICITY TO VARIOUS AGENTS [None]
  - FATIGUE [None]
  - ABDOMINAL PAIN [None]
  - VOMITING [None]
  - NAUSEA [None]
